FAERS Safety Report 8527892 (Version 2)
Quarter: 2013Q1

REPORT INFORMATION
  Report Type: Spontaneous
  Country: US (occurrence: US)
  Receive Date: 20120424
  Receipt Date: 20130207
  Transmission Date: 20140127
  Serious: Yes (Death, Other)
  Sender: FDA-Public Use
  Company Number: US-JNJFOC-20120409111

PATIENT
  Sex: 0

DRUGS (8)
  1. DOXORUBICIN [Suspect]
     Indication: B-CELL LYMPHOMA
     Dosage: FOR 6 CYCLES ON DAYS 8, 29, 50, 71, 92 AND 113
     Route: 042
  2. CYCLOPHOSPHAMIDE [Suspect]
     Indication: B-CELL LYMPHOMA
     Dosage: FOR 6 CYCLES ON DAYS 8, 29, 50, 71, 92 AND 113
     Route: 042
  3. VINCRISTINE [Suspect]
     Indication: B-CELL LYMPHOMA
     Dosage: FOR 6 CYCLES ON DAYS 8, 29, 50, 71, 92 AND 113
     Route: 042
  4. PREDNISONE [Suspect]
     Indication: B-CELL LYMPHOMA
     Dosage: FOR 5 DAYS
     Route: 048
  5. RITUXIMAB [Suspect]
     Indication: B-CELL LYMPHOMA
     Dosage: ON DAYS 1, 6, 48, 90, 134, AND 141
     Route: 065
  6. TOSITUMOMAB I-131 [Suspect]
     Indication: B-CELL LYMPHOMA
     Dosage: DOSIMETRIC
     Route: 065
  7. TOSITUMOMAB I-131 [Suspect]
     Indication: B-CELL LYMPHOMA
     Dosage: THERAPEUTIC
     Route: 065
  8. TOSITUMOMAB [Suspect]
     Indication: B-CELL LYMPHOMA
     Dosage: FOR 5 DAYS AT 3 WEEK INTERVAL
     Route: 065

REACTIONS (16)
  - Neutropenia [Unknown]
  - Death [Fatal]
  - B-cell lymphoma [Unknown]
  - Haematotoxicity [Unknown]
  - Acute myeloid leukaemia [Unknown]
  - Adverse event [Unknown]
  - Myelodysplastic syndrome [Unknown]
  - Neoplasm malignant [Unknown]
  - Thrombocytopenia [Unknown]
  - Anaemia [Unknown]
  - Infection [Unknown]
  - Febrile neutropenia [Unknown]
  - Gastrointestinal disorder [Unknown]
  - Cardiovascular disorder [Unknown]
  - Fatigue [Unknown]
  - Thyroid disorder [Unknown]
